FAERS Safety Report 15906300 (Version 1)
Quarter: 2019Q1

REPORT INFORMATION
  Report Type: Spontaneous
  Country: US (occurrence: US)
  Receive Date: 20190204
  Receipt Date: 20190204
  Transmission Date: 20190417
  Serious: No
  Sender: FDA-Public Use
  Company Number: US-LEADING PHARMA, LLC-2062117

PATIENT
  Age: 65 Year
  Sex: Female

DRUGS (1)
  1. LORAZEPAM. [Suspect]
     Active Substance: LORAZEPAM
     Route: 048

REACTIONS (7)
  - Palpitations [Recovered/Resolved]
  - Eye swelling [Recovered/Resolved]
  - Anxiety [Recovered/Resolved]
  - Eye pruritus [Recovered/Resolved]
  - Panic attack [Recovered/Resolved]
  - Gastrointestinal pain [Recovered/Resolved]
  - Insomnia [Recovered/Resolved]
